FAERS Safety Report 4721511-5 (Version None)
Quarter: 2005Q3

REPORT INFORMATION
  Report Type: 
  Country: None (occurrence: None)
  Receive Date: 20050721
  Receipt Date: 20041027
  Transmission Date: 20060218
  Serious: No
  Sender: FDA-Public Use
  Company Number: US-BRISTOL-MYERS SQUIBB COMPANY-12747424

PATIENT
  Age: 46 Year
  Sex: Female

DRUGS (1)
  1. COUMADIN [Suspect]
     Dosage: DOSE INCREASED; CURRENT DOSE: TWO 5MG TABS, 3X'S WEEK +ONE 5MG TAB, 4X'S  WEEKLY
     Route: 048

REACTIONS (1)
  - DRUG INEFFECTIVE [None]
